FAERS Safety Report 6816869-7 (Version None)
Quarter: 2010Q3

REPORT INFORMATION
  Report Type: 
  Country: None (occurrence: None)
  Receive Date: 20100706
  Receipt Date: 20100624
  Transmission Date: 20110219
  Serious: Yes (Other)
  Sender: FDA-Public Use
  Company Number: GB-JNJFOC-20100608108

PATIENT
  Sex: Female

DRUGS (3)
  1. TOPAMAX [Suspect]
     Indication: EPILEPSY
     Dosage: 50 MG IN THE MORNING AND 100MG AT NIGHT
     Route: 048
  2. TOPAMAX [Suspect]
     Route: 048
  3. PREGABALIN [Suspect]
     Indication: EPILEPSY
     Route: 065

REACTIONS (4)
  - OEDEMA PERIPHERAL [None]
  - OROPHARYNGEAL SPASM [None]
  - RENAL PAIN [None]
  - URINE OUTPUT INCREASED [None]
